FAERS Safety Report 9603374 (Version 1)
Quarter: 2013Q4

REPORT INFORMATION
  Report Type: Spontaneous
  Country: DK (occurrence: FR)
  Receive Date: 20131007
  Receipt Date: 20131007
  Transmission Date: 20140711
  Serious: Yes (Death)
  Sender: FDA-Public Use
  Company Number: FR-FRI-1000049609

PATIENT
  Age: 40 Year
  Sex: Male

DRUGS (3)
  1. ESCITALOPRAM [Suspect]
     Dosage: 20 MG
     Route: 048
     Dates: start: 20100926, end: 20130921
  2. KESTINE [Interacting]
  3. PSYCHOTROPIC AGENTS NOS [Concomitant]
     Dosage: PSYCHOTROPIC AGENT OVERDOSE NOS

REACTIONS (2)
  - Sudden death [Fatal]
  - Labelled drug-drug interaction medication error [Fatal]
